FAERS Safety Report 5708250-9 (Version None)
Quarter: 2008Q2

REPORT INFORMATION
  Report Type: 
  Country: None (occurrence: None)
  Receive Date: 20080417
  Receipt Date: 20080410
  Transmission Date: 20081010
  Serious: Yes (Other)
  Sender: FDA-Public Use
  Company Number: ES-ROCHE-374727

PATIENT
  Sex: Male
  Weight: 82.8 kg

DRUGS (15)
  1. DACLIZUMAB [Suspect]
     Route: 042
     Dates: start: 20040306
  2. DACLIZUMAB [Suspect]
     Route: 042
     Dates: end: 20040503
  3. MYCOPHENOLATE MOFETIL [Suspect]
     Route: 048
     Dates: start: 20040306, end: 20040709
  4. TACROLIMUS [Suspect]
     Route: 048
     Dates: start: 20040306, end: 20040320
  5. TACROLIMUS [Suspect]
     Route: 048
     Dates: start: 20040521
  6. PREDNISONE [Suspect]
     Indication: IMMUNOSUPPRESSION
     Route: 048
     Dates: start: 20040514
  7. PREDNISONE [Suspect]
     Route: 048
     Dates: start: 20040308
  8. SULFAMETHOXAZOLE AND TRIMETHOPRIM [Concomitant]
     Dosage: DOSE PROVIDED AS 80/400 MG.
     Route: 048
     Dates: start: 20040610
  9. SULFAMETHOXAZOLE AND TRIMETHOPRIM [Concomitant]
     Dosage: DOSE PROVIDED AS 80/400 MG.
     Route: 048
     Dates: start: 20040610
  10. RANITIDINE [Concomitant]
     Route: 048
     Dates: start: 20040308
  11. DOXAZOSIN MESYLATE [Concomitant]
     Route: 048
     Dates: start: 20040521
  12. BISOPROLOL FUMARATE [Concomitant]
     Route: 048
     Dates: start: 20040311
  13. AMLODIPINO [Concomitant]
     Route: 048
     Dates: start: 20040614
  14. PRAVASTATIN [Concomitant]
     Route: 048
     Dates: start: 20040412
  15. ALLOPURINOL [Concomitant]
     Route: 048
     Dates: start: 20040412

REACTIONS (1)
  - HUMAN POLYOMAVIRUS INFECTION [None]
